FAERS Safety Report 8901741 (Version 3)
Quarter: 2013Q3

REPORT INFORMATION
  Report Type: Spontaneous
  Country: US (occurrence: None)
  Receive Date: 20121105
  Receipt Date: 20130925
  Transmission Date: 20140515
  Serious: Yes (Death, Other)
  Sender: FDA-Public Use
  Company Number: ACO_32692_2012

PATIENT
  Age: 53 Year
  Sex: Male

DRUGS (2)
  1. AMPYRA (DALFAMPRIDINE) TABLET, 10MG [Suspect]
     Indication: GAIT DISTURBANCE
     Dates: start: 20120709
  2. ABILIFY (ARIPIPRAZOLE) [Concomitant]

REACTIONS (4)
  - Nosophobia [None]
  - Haemoglobin decreased [None]
  - Completed suicide [None]
  - Small intestine carcinoma [None]
